FAERS Safety Report 8836222 (Version 2)
Quarter: 2012Q4

REPORT INFORMATION
  Report Type: 
  Country: US (occurrence: US)
  Receive Date: 20121011
  Receipt Date: 20121119
  Transmission Date: 20130627
  Serious: Yes (Other)
  Sender: FDA-Public Use
  Company Number: US-PFIZER INC-2012250845

PATIENT
  Age: 47 Year
  Sex: Female
  Weight: 90.7 kg

DRUGS (2)
  1. LYRICA [Suspect]
     Indication: NEUROPATHY
     Dosage: 225 mg, 2x/day
     Route: 048
  2. LYRICA [Suspect]
     Dosage: 225 mg, 1x/day
     Route: 048

REACTIONS (3)
  - Surgery [Unknown]
  - Neuropathy peripheral [Unknown]
  - Pain [Unknown]
